FAERS Safety Report 7749783-3 (Version None)
Quarter: 2011Q3

REPORT INFORMATION
  Report Type: 
  Country: None (occurrence: None)
  Receive Date: 20110914
  Receipt Date: 20110905
  Transmission Date: 20111222
  Serious: Yes (Other)
  Sender: FDA-Public Use
  Company Number: US-JNJFOC-20110811480

PATIENT
  Sex: Male
  Weight: 81.65 kg

DRUGS (7)
  1. METHADONE HCL [Concomitant]
     Indication: PAIN
     Route: 048
     Dates: start: 20110501
  2. LUPRON [Concomitant]
     Indication: PROSTATE CANCER
     Route: 065
     Dates: start: 20070101
  3. SIMVASTATIN [Concomitant]
     Indication: BLOOD CHOLESTEROL
     Route: 048
     Dates: start: 20090101
  4. ZYTIGA [Suspect]
     Indication: PROSTATE CANCER
     Dosage: STRENGTH: 250 MG
     Route: 048
     Dates: start: 20110601
  5. PROMETHEGAN [Concomitant]
     Indication: NAUSEA
     Route: 048
     Dates: start: 20100101
  6. FAMOTIDINE [Concomitant]
     Indication: ULCER
     Route: 048
     Dates: start: 20110201
  7. XGEVA [Concomitant]
     Indication: PROSTATE CANCER
     Route: 065
     Dates: start: 20090101

REACTIONS (5)
  - WEIGHT INCREASED [None]
  - PROSTATIC SPECIFIC ANTIGEN INCREASED [None]
  - FATIGUE [None]
  - HYPERSOMNIA [None]
  - DRUG INEFFECTIVE [None]
